FAERS Safety Report 18446836 (Version 1)
Quarter: 2020Q4

REPORT INFORMATION
  Report Type: Spontaneous
  Country: US (occurrence: US)
  Receive Date: 20201030
  Receipt Date: 20201030
  Transmission Date: 20210114
  Serious: Yes (Other)
  Sender: FDA-Public Use
  Company Number: None

PATIENT
  Age: 70 Year
  Sex: Male

DRUGS (6)
  1. OZEMPIC [Concomitant]
     Active Substance: SEMAGLUTIDE
  2. ANDROGEL [Concomitant]
     Active Substance: TESTOSTERONE
  3. CLOBETASOL [Concomitant]
     Active Substance: CLOBETASOL
  4. GLIMEPIRIDE. [Concomitant]
     Active Substance: GLIMEPIRIDE
  5. HUMIRA [Suspect]
     Active Substance: ADALIMUMAB
     Indication: PSORIATIC ARTHROPATHY
     Dosage: ?          OTHER FREQUENCY:EVERY 10 DAYS;?
     Route: 058
     Dates: start: 20181010
  6. LANTUS [Concomitant]
     Active Substance: INSULIN GLARGINE

REACTIONS (2)
  - Spinal operation [None]
  - Therapy interrupted [None]

NARRATIVE: CASE EVENT DATE: 20201026
